FAERS Safety Report 8904689 (Version 1)
Quarter: 2012Q4

REPORT INFORMATION
  Report Type: 
  Country: US (occurrence: US)
  Receive Date: 20121113
  Receipt Date: 20121113
  Transmission Date: 20130627
  Serious: No
  Sender: FDA-Public Use
  Company Number: US-GLAXOSMITHKLINE-A0970596A

PATIENT
  Sex: Female

DRUGS (7)
  1. COREG [Suspect]
     Indication: HYPERTENSION
     Dosage: 25MG Twice per day
     Route: 048
     Dates: start: 2008
  2. CRESTOR [Concomitant]
  3. ALTACE [Concomitant]
  4. LIPITOR [Concomitant]
  5. B-12 [Concomitant]
  6. ASPIRIN [Concomitant]
  7. FISH OILS [Concomitant]

REACTIONS (5)
  - Sensation of blood flow [Recovering/Resolving]
  - Pain [Unknown]
  - Ill-defined disorder [Unknown]
  - Fatigue [Unknown]
  - Headache [Unknown]
